FAERS Safety Report 16399100 (Version 2)
Quarter: 2020Q1

REPORT INFORMATION
  Report Type: Report from Study
  Country: US (occurrence: US)
  Receive Date: 20190606
  Receipt Date: 20200304
  Transmission Date: 20200409
  Serious: Yes (Disabling, Other)
  Sender: FDA-Public Use
  Company Number: US-SA-2019SA151299

PATIENT
  Age: 62 Year
  Sex: Male

DRUGS (1)
  1. INSULIN GLARGINE [Suspect]
     Active Substance: INSULIN GLARGINE
     Indication: TYPE 2 DIABETES MELLITUS
     Dosage: 60 IU, QD (EVERY NIGHT)
     Route: 058

REACTIONS (5)
  - Neuroendocrine carcinoma metastatic [Not Recovered/Not Resolved]
  - Impaired work ability [Not Recovered/Not Resolved]
  - Intentional product misuse [Unknown]
  - Disability [Not Recovered/Not Resolved]
  - Dyspnoea [Unknown]

NARRATIVE: CASE EVENT DATE: 201703
